FAERS Safety Report 23468327 (Version 1)
Quarter: 2024Q1

REPORT INFORMATION
  Report Type: Report from Study
  Country: US (occurrence: US)
  Receive Date: 20240202
  Receipt Date: 20240202
  Transmission Date: 20240410
  Serious: Yes (Other)
  Sender: FDA-Public Use
  Company Number: US-ABBVIE-5611349

PATIENT
  Age: 59 Year
  Sex: Female

DRUGS (1)
  1. HUMIRA [Suspect]
     Active Substance: ADALIMUMAB
     Indication: Psoriatic arthropathy
     Dosage: CITRATE FREE, FORM STRENGTH: 40 MILLIGRAM
     Route: 058

REACTIONS (5)
  - Neoplasm malignant [Unknown]
  - Hysterectomy [Unknown]
  - Fungal skin infection [Unknown]
  - Acute kidney injury [Unknown]
  - Fatigue [Unknown]

NARRATIVE: CASE EVENT DATE: 20231227
